FAERS Safety Report 6725626-1 (Version None)
Quarter: 2010Q2

REPORT INFORMATION
  Report Type: 
  Country: None (occurrence: None)
  Receive Date: 20100512
  Receipt Date: 20100504
  Transmission Date: 20101027
  Serious: Yes (Death)
  Sender: FDA-Public Use
  Company Number: 2010SP025074

PATIENT
  Age: 22 Year
  Sex: Female
  Weight: 37 kg

DRUGS (7)
  1. REMERON [Suspect]
     Indication: DEPRESSION
     Dosage: ;QD;
     Dates: start: 20100122, end: 20100215
  2. EFFEXOR [Suspect]
     Indication: DEPRESSION
     Dosage: :QD:
     Dates: start: 20100122, end: 20100215
  3. ZOLOFT [Suspect]
     Indication: DEPRESSION
     Dates: start: 20091224, end: 20100107
  4. ZYPREXA [Suspect]
     Indication: DEPRESSION
     Dates: start: 20091224, end: 20100107
  5. MEDROL [Concomitant]
  6. LOSEC I.V. [Concomitant]
  7. MESALAMINE [Concomitant]

REACTIONS (2)
  - COMPLETED SUICIDE [None]
  - WEIGHT DECREASED [None]
